FAERS Safety Report 13891472 (Version 1)
Quarter: 2017Q3

REPORT INFORMATION
  Report Type: Spontaneous
  Country: US (occurrence: US)
  Receive Date: 20170822
  Receipt Date: 20170822
  Transmission Date: 20171127
  Serious: No
  Sender: FDA-Public Use
  Company Number: US-PFIZER INC-2017362118

PATIENT
  Age: 63 Year
  Sex: Male
  Weight: 59 kg

DRUGS (8)
  1. FOSAMAX [Concomitant]
     Active Substance: ALENDRONATE SODIUM
     Indication: ARTHRALGIA
     Dosage: 70 MG, WEEKLY
     Route: 048
     Dates: start: 20170808
  2. PREDNISONE. [Concomitant]
     Active Substance: PREDNISONE
     Indication: ARTHRALGIA
     Dosage: 8 MG, 1X/DAY
     Route: 048
     Dates: start: 20170711
  3. LYRICA [Suspect]
     Active Substance: PREGABALIN
     Indication: FIBROMYALGIA
     Dosage: 50 MG, 1X/DAY
     Route: 048
     Dates: start: 20170711, end: 20170807
  4. LATANOPROST. [Concomitant]
     Active Substance: LATANOPROST
     Indication: GLAUCOMA
     Dosage: 1 DF, 1X/DAY
     Route: 047
  5. LYRICA [Suspect]
     Active Substance: PREGABALIN
     Indication: ARTHRALGIA
  6. WELLBUTRIN XL [Concomitant]
     Active Substance: BUPROPION HYDROCHLORIDE
     Indication: DEPRESSION
     Dosage: 300 MG, 1X/DAY
     Route: 048
  7. XANAX [Concomitant]
     Active Substance: ALPRAZOLAM
     Indication: ANXIETY
     Dosage: 0.25 MG, 1X/DAY
     Route: 048
  8. PLAVIX [Concomitant]
     Active Substance: CLOPIDOGREL BISULFATE
     Indication: CEREBROVASCULAR ACCIDENT
     Dosage: 75 MG, 1X/DAY
     Route: 048

REACTIONS (3)
  - Rash [Recovered/Resolved]
  - Erectile dysfunction [Recovered/Resolved]
  - Heart rate increased [Recovered/Resolved]

NARRATIVE: CASE EVENT DATE: 20170720
